FAERS Safety Report 4547734-6 (Version None)
Quarter: 2005Q1

REPORT INFORMATION
  Report Type: 
  Country: None (occurrence: None)
  Receive Date: 20050107
  Receipt Date: 20041119
  Transmission Date: 20050727
  Serious: Yes (Hospitalization)
  Sender: FDA-Public Use
  Company Number: FR-MERCK-0411FRA00072

PATIENT
  Age: 82 Year
  Sex: Male

DRUGS (13)
  1. LOPRAZOLAM MESYLATE [Concomitant]
     Route: 048
  2. ACENOCOUMAROL [Concomitant]
     Indication: ANTICOAGULANT THERAPY
     Route: 048
  3. POTASSIUM CHLORIDE [Concomitant]
     Indication: MINERAL SUPPLEMENTATION
     Route: 048
  4. VIOXX [Suspect]
     Route: 048
     Dates: end: 20040901
  5. DOXAZOSIN MESYLATE [Suspect]
     Indication: BENIGN PROSTATIC HYPERPLASIA
     Route: 048
     Dates: end: 20040916
  6. ACETAMINOPHEN AND TRAMADOL HCL [Suspect]
     Route: 048
     Dates: end: 20040916
  7. HYDROXYZINE HYDROCHLORIDE [Suspect]
     Route: 048
     Dates: end: 20040916
  8. AMIODARONE [Suspect]
     Route: 048
     Dates: end: 20040916
  9. BETAHISTINE HYDROCHLORIDE [Suspect]
     Route: 048
     Dates: end: 20040916
  10. FOSINOPRIL SODIUM [Concomitant]
     Indication: HYPERTENSION
     Route: 048
  11. CLONIDINE HYDROCHLORIDE [Concomitant]
     Indication: HYPERTENSION
     Route: 048
  12. AMLODIPINE BESYLATE [Concomitant]
     Indication: HYPERTENSION
     Route: 048
  13. PRAVASTATIN SODIUM [Concomitant]
     Indication: DYSLIPIDAEMIA
     Route: 048

REACTIONS (3)
  - DERMATITIS [None]
  - HYPOTHYROIDISM [None]
  - RASH PAPULAR [None]
